FAERS Safety Report 24253120 (Version 1)
Quarter: 2024Q3

REPORT INFORMATION
  Report Type: Spontaneous
  Country: US (occurrence: None)
  Receive Date: 20240824
  Receipt Date: 20240824
  Transmission Date: 20241017
  Serious: Yes (Hospitalization)
  Sender: Public
  Company Number: None

PATIENT
  Age: 69 Year
  Sex: Female
  Weight: 62.6 kg

DRUGS (7)
  1. CYCLOPHOSPHAMIDE [Suspect]
     Active Substance: CYCLOPHOSPHAMIDE
  2. CYTARABINE [Concomitant]
     Active Substance: CYTARABINE
  3. Dasatinib (BMS-354825, Sprycel [Concomitant]
  4. DEXAMETHASONE [Concomitant]
  5. DOXORUBICIN HYDROCHLORIDE [Concomitant]
  6. METHOTREXATE [Concomitant]
  7. VINCRISTINE SULFATE [Concomitant]

REACTIONS (2)
  - Neutropenia [None]
  - Sepsis [None]

NARRATIVE: CASE EVENT DATE: 20240605
